FAERS Safety Report 9491093 (Version 3)
Quarter: 2013Q3

REPORT INFORMATION
  Report Type: Spontaneous
  Country: US (occurrence: None)
  Receive Date: 20130826
  Receipt Date: 20130924
  Transmission Date: 20140515
  Serious: Yes (Death, Hospitalization)
  Sender: FDA-Public Use
  Company Number: 2013NUEUSA00227

PATIENT
  Age: 49 Year
  Sex: Female

DRUGS (2)
  1. NUEDEXTA [Suspect]
     Indication: AFFECT LABILITY
     Dosage: 1 CAP, Q12 HRS
     Dates: start: 20130604
  2. AMPICILLIN (AMPICILLIN) [Concomitant]

REACTIONS (11)
  - Pyrexia [None]
  - Tachycardia [None]
  - White blood cell count increased [None]
  - Blood pressure decreased [None]
  - Lethargy [None]
  - Dyspnoea [None]
  - Anxiety [None]
  - Oedema [None]
  - Sepsis [None]
  - General physical health deterioration [None]
  - Speech disorder [None]
